FAERS Safety Report 25682166 (Version 1)
Quarter: 2025Q3

REPORT INFORMATION
  Report Type: Spontaneous
  Country: EU (occurrence: EU)
  Receive Date: 20250814
  Receipt Date: 20250814
  Transmission Date: 20251021
  Serious: Yes (Hospitalization, Other)
  Sender: SANOFI AVENTIS
  Company Number: None

PATIENT
  Age: 68 Year
  Sex: Female
  Weight: 103 kg

DRUGS (3)
  1. APIXABAN [Suspect]
     Active Substance: APIXABAN
     Indication: Atrial fibrillation
     Dosage: 1 DF, BID
     Route: 048
     Dates: start: 20210422
  2. HYDROCHLOROTHIAZIDE\IRBESARTAN [Suspect]
     Active Substance: HYDROCHLOROTHIAZIDE\IRBESARTAN
     Indication: Hypertension
     Dosage: 1 DF, QD
     Route: 048
     Dates: start: 20210422
  3. FELODIPINE\METOPROLOL SUCCINATE [Suspect]
     Active Substance: FELODIPINE\METOPROLOL SUCCINATE
     Indication: Hypertension
     Dosage: 1 DF, BID
     Route: 048
     Dates: start: 20210422

REACTIONS (1)
  - Eosinophilic pneumonia [Recovering/Resolving]

NARRATIVE: CASE EVENT DATE: 20210806
